FAERS Safety Report 4270986-7 (Version None)
Quarter: 2004Q1

REPORT INFORMATION
  Report Type: 
  Country: None (occurrence: None)
  Receive Date: 20040114
  Receipt Date: 20040108
  Transmission Date: 20041129
  Serious: Yes (Hospitalization)
  Sender: FDA-Public Use
  Company Number: WAES 0401ITA00003

PATIENT
  Age: 73 Year
  Sex: Female

DRUGS (8)
  1. DOMPERIDONE [Suspect]
     Indication: HIATUS HERNIA
     Route: 048
  2. ETHYL EICOSAPENTAENOATE [Concomitant]
     Route: 048
  3. PROSCAR [Suspect]
     Indication: ALOPECIA
     Route: 048
  4. LORAZEPAM [Concomitant]
     Route: 048
  5. OXERUTINS [Concomitant]
  6. TIMOLOL MALEATE [Concomitant]
     Route: 048
  7. AMLODIPINE BESYLATE [Concomitant]
     Route: 048
  8. ASPIRIN [Concomitant]
     Route: 048

REACTIONS (3)
  - ACCELERATED IDIOVENTRICULAR RHYTHM [None]
  - ARRHYTHMIA [None]
  - MEDICATION ERROR [None]
